FAERS Safety Report 18984743 (Version 1)
Quarter: 2021Q1

REPORT INFORMATION
  Report Type: Spontaneous
  Country: NP (occurrence: NP)
  Receive Date: 20210309
  Receipt Date: 20210309
  Transmission Date: 20210420
  Serious: Yes (Hospitalization, Other)
  Sender: FDA-Public Use
  Company Number: NP-VISTAPHARM, INC.-VER202103-000862

PATIENT
  Age: 28 Year
  Sex: Female

DRUGS (1)
  1. MYCOPHENOLATE MOFETIL, USP [Suspect]
     Active Substance: MYCOPHENOLATE MOFETIL
     Indication: IGA NEPHROPATHY
     Dosage: UNKNOWN

REACTIONS (1)
  - Posterior reversible encephalopathy syndrome [Recovered/Resolved]
